FAERS Safety Report 5367083-6 (Version None)
Quarter: 2007Q2

REPORT INFORMATION
  Report Type: 
  Country: None (occurrence: None)
  Receive Date: 20070622
  Receipt Date: 20070615
  Transmission Date: 20071010
  Serious: Yes (Disabling)
  Sender: FDA-Public Use
  Company Number: D0053215A

PATIENT
  Age: 33 Year
  Sex: Female

DRUGS (2)
  1. ARIXTRA [Suspect]
     Route: 058
     Dates: start: 20070124, end: 20070208
  2. ANTICOAGULANT [Concomitant]
     Route: 048
     Dates: start: 20070101

REACTIONS (6)
  - ARTERIAL OCCLUSIVE DISEASE [None]
  - ARTERIAL STENOSIS LIMB [None]
  - DEEP VEIN THROMBOSIS [None]
  - DRUG HYPERSENSITIVITY [None]
  - HEPARIN-INDUCED THROMBOCYTOPENIA [None]
  - THROMBOCYTOPENIA [None]
